FAERS Safety Report 6656421-X (Version None)
Quarter: 2010Q1

REPORT INFORMATION
  Report Type: 
  Country: None (occurrence: None)
  Receive Date: 20100326
  Receipt Date: 20100326
  Transmission Date: 20100710
  Serious: Yes (Other)
  Sender: FDA-Public Use
  Company Number: None

PATIENT
  Age: 51 Year
  Sex: Female
  Weight: 43.0917 kg

DRUGS (1)
  1. BONIVA [Suspect]
     Indication: OSTEOPOROSIS
     Dosage: MONTHLY-INJECTION
     Dates: start: 20060713, end: 20070511

REACTIONS (4)
  - BONE DISORDER [None]
  - GINGIVAL EROSION [None]
  - ORAL DISORDER [None]
  - OROPHARYNGEAL BLISTERING [None]
